FAERS Safety Report 8895845 (Version 2)
Quarter: 2012Q4

REPORT INFORMATION
  Report Type: 
  Country: FR (occurrence: FR)
  Receive Date: 20121108
  Receipt Date: 20121218
  Transmission Date: 20130627
  Serious: Yes (Other)
  Sender: FDA-Public Use
  Company Number: FR-JNJFOC-20121100870

PATIENT
  Sex: Male

DRUGS (2)
  1. HALDOL [Suspect]
     Indication: PRODUCT USED FOR UNKNOWN INDICATION
     Route: 030
     Dates: start: 20121022
  2. HALDOL [Suspect]
     Indication: PRODUCT USED FOR UNKNOWN INDICATION
     Route: 030

REACTIONS (10)
  - Monoplegia [Unknown]
  - Mental disorder [Unknown]
  - Visual impairment [Unknown]
  - Incontinence [Unknown]
  - Euphoric mood [Unknown]
  - Vertigo [Unknown]
  - Insomnia [Unknown]
  - Constipation [Unknown]
  - Erection increased [Unknown]
  - Fatigue [Unknown]
